FAERS Safety Report 11047053 (Version 1)
Quarter: 2015Q2

REPORT INFORMATION
  Report Type: Spontaneous
  Country: US (occurrence: US)
  Receive Date: 20150420
  Receipt Date: 20150420
  Transmission Date: 20150821
  Serious: Yes (Other)
  Sender: FDA-Public Use
  Company Number: US-RRD-14-00078

PATIENT
  Age: 47 Year
  Sex: Female

DRUGS (4)
  1. VINCRISTINE [Suspect]
     Active Substance: VINCRISTINE
     Indication: HODGKIN^S DISEASE
     Route: 065
  2. PREDNISONE. [Suspect]
     Active Substance: PREDNISONE
     Indication: HODGKIN^S DISEASE
     Route: 065
  3. PROCARBAZINE [Suspect]
     Active Substance: PROCARBAZINE
     Indication: HODGKIN^S DISEASE
     Route: 065
  4. MECHLORETHAMINE [Suspect]
     Active Substance: MECHLORETHAMINE
     Indication: HODGKIN^S DISEASE
     Route: 065

REACTIONS (6)
  - Desmoid tumour [Unknown]
  - Invasive ductal breast carcinoma [Unknown]
  - Colon adenoma [Not Recovered/Not Resolved]
  - Atrioventricular block [None]
  - Rectal adenoma [Not Recovered/Not Resolved]
  - Large intestine polyp [Not Recovered/Not Resolved]
